FAERS Safety Report 18604568 (Version 1)
Quarter: 2020Q4

REPORT INFORMATION
  Report Type: Report from Study
  Country: None (occurrence: US)
  Receive Date: 20201211
  Receipt Date: 20201211
  Transmission Date: 20210114
  Serious: Yes (Other)
  Sender: FDA-Public Use
  Company Number: US-ABBVIE-20K-163-3646167-00

PATIENT
  Sex: Female

DRUGS (2)
  1. IMBRUVICA [Suspect]
     Active Substance: IBRUTINIB
     Route: 048
     Dates: start: 20200926
  2. IMBRUVICA [Suspect]
     Active Substance: IBRUTINIB
     Indication: WALDENSTROM^S MACROGLOBULINAEMIA
     Route: 048
     Dates: start: 20200928

REACTIONS (7)
  - Haemoglobin abnormal [Unknown]
  - Fall [Recovering/Resolving]
  - Pruritus [Not Recovered/Not Resolved]
  - Transfusion [Unknown]
  - Bone density abnormal [Unknown]
  - Haemoglobin decreased [Recovering/Resolving]
  - Mydriasis [Unknown]

NARRATIVE: CASE EVENT DATE: 2020
